FAERS Safety Report 4368054-9 (Version None)
Quarter: 2004Q2

REPORT INFORMATION
  Report Type: 
  Country: None (occurrence: None)
  Receive Date: 20040527
  Receipt Date: 20040205
  Transmission Date: 20050107
  Serious: No
  Sender: FDA-Public Use
  Company Number: 204599

PATIENT
  Age: 48 Year
  Sex: Female
  Weight: 70 kg

DRUGS (3)
  1. RAPTIVA [Suspect]
     Indication: PSORIASIS
     Dosage: 0.7 MG/KG, SINGLE, SUBCUTANEOUS/70MG 1/WEEK SUBCUTANEOUS
     Route: 058
     Dates: start: 20040105, end: 20040105
  2. RAPTIVA [Suspect]
     Indication: PSORIASIS
     Dosage: 0.7 MG/KG, SINGLE, SUBCUTANEOUS/70MG 1/WEEK SUBCUTANEOUS
     Route: 058
     Dates: start: 20040101, end: 20040204
  3. ... [Suspect]
     Dosage: 70 MG, 1/WEEK, SUBCUTANEOUS
     Route: 058
     Dates: start: 20040101, end: 20040204

REACTIONS (1)
  - URTICARIA [None]
